FAERS Safety Report 6521997-X (Version None)
Quarter: 2009Q4

REPORT INFORMATION
  Report Type: 
  Country: None (occurrence: None)
  Receive Date: 20091230
  Receipt Date: 20091215
  Transmission Date: 20100525
  Serious: Yes (Hospitalization)
  Sender: FDA-Public Use
  Company Number: US-PFIZER INC-2009310590

PATIENT
  Age: 35 Year
  Sex: Female

DRUGS (4)
  1. XANAX [Suspect]
  2. CYMBALTA [Suspect]
     Indication: ANXIETY
     Dosage: 60 MG, 1X/DAY, DAILY
     Route: 065
     Dates: start: 20091001
  3. ZYPREXA [Suspect]
     Indication: ANXIETY
     Dosage: 5 MG, DAILY, 1X/DAY
     Route: 065
     Dates: start: 20091001, end: 20091101
  4. AMBIEN [Concomitant]

REACTIONS (4)
  - DRUG INEFFECTIVE [None]
  - INTENTIONAL DRUG MISUSE [None]
  - OFF LABEL USE [None]
  - SUICIDAL IDEATION [None]
